FAERS Safety Report 9771919 (Version 2)
Quarter: 2013Q4

REPORT INFORMATION
  Report Type: Report from Study
  Country: RU (occurrence: RU)
  Receive Date: 20131219
  Receipt Date: 20131219
  Transmission Date: 20140711
  Serious: Yes (Other)
  Sender: FDA-Public Use
  Company Number: RU-MERCK-1309RUS004980

PATIENT
  Age: 19 Year
  Sex: Male
  Weight: 81.7 kg

DRUGS (3)
  1. PLACEBO [Suspect]
     Indication: CHRONIC HEPATITIS C
     Dosage: UNK UNK, TID
     Route: 048
     Dates: start: 20120409
  2. PEGINTERFERON ALFA-2B [Suspect]
     Indication: CHRONIC HEPATITIS C
     Dosage: FORMULATION: REDIPEN, 120 MICROGRAM; 0.5 ML QW
     Route: 058
     Dates: start: 20120409
  3. RIBAVIRIN [Suspect]
     Indication: CHRONIC HEPATITIS C
     Dosage: 600 MG, BID
     Route: 048
     Dates: start: 20120409

REACTIONS (1)
  - Neutropenia [Unknown]
